FAERS Safety Report 6652278-1 (Version None)
Quarter: 2010Q1

REPORT INFORMATION
  Report Type: 
  Country: None (occurrence: None)
  Receive Date: 20100323
  Receipt Date: 20100309
  Transmission Date: 20100710
  Serious: Yes (Other)
  Sender: FDA-Public Use
  Company Number: 20108142

PATIENT
  Sex: Female

DRUGS (1)
  1. LIORESAL [Suspect]
     Indication: MUSCLE SPASTICITY
     Dosage: 264 MCG, DAILY, INTRATHECAL, FLEX
     Route: 037

REACTIONS (7)
  - CONDITION AGGRAVATED [None]
  - DRUG INEFFECTIVE [None]
  - MEDICAL DEVICE COMPLICATION [None]
  - MUSCLE SPASTICITY [None]
  - OEDEMA PERIPHERAL [None]
  - UNDERDOSE [None]
  - WITHDRAWAL SYNDROME [None]
